FAERS Safety Report 21015025 (Version 2)
Quarter: 2022Q3

REPORT INFORMATION
  Report Type: Report from Study
  Country: CN (occurrence: CN)
  Receive Date: 20220628
  Receipt Date: 20220810
  Transmission Date: 20221027
  Serious: Yes (Disabling, Other)
  Sender: FDA-Public Use
  Company Number: CN-BRISTOL-MYERS SQUIBB COMPANY-2022-031002

PATIENT
  Age: 62 Year
  Sex: Female

DRUGS (2)
  1. OPDIVO [Suspect]
     Active Substance: NIVOLUMAB
     Indication: Non-small cell lung cancer
     Dosage: Q2W
     Route: 041
     Dates: start: 20220224
  2. OPDIVO [Suspect]
     Active Substance: NIVOLUMAB

REACTIONS (2)
  - Metastases to central nervous system [Unknown]
  - Gait inability [Unknown]
